FAERS Safety Report 24393177 (Version 1)
Quarter: 2024Q4

REPORT INFORMATION
  Report Type: Spontaneous
  Country: US (occurrence: None)
  Receive Date: 20241003
  Receipt Date: 20241003
  Transmission Date: 20250115
  Serious: Yes (Life-Threatening)
  Sender: Public
  Company Number: None

PATIENT
  Age: 46 Year
  Sex: Female

DRUGS (1)
  1. TAVNEOS [Suspect]
     Active Substance: AVACOPAN
     Dosage: FREQUENCY : TWICE A DAY;?
     Route: 048
     Dates: start: 20220607

REACTIONS (1)
  - Lung neoplasm malignant [None]

NARRATIVE: CASE EVENT DATE: 20241003
